FAERS Safety Report 9540702 (Version 1)
Quarter: 2013Q3

REPORT INFORMATION
  Report Type: Spontaneous
  Country: US (occurrence: US)
  Receive Date: 20130920
  Receipt Date: 20130920
  Transmission Date: 20140515
  Serious: Yes (Hospitalization, Other)
  Sender: FDA-Public Use
  Company Number: US-BRISTOL-MYERS SQUIBB COMPANY-19353739

PATIENT
  Age: 77 Year
  Sex: Male
  Weight: 107.16 kg

DRUGS (21)
  1. BYDUREON [Suspect]
     Indication: TYPE 2 DIABETES MELLITUS
     Dosage: LAST DOSE:28AUG2013
     Dates: start: 201302
  2. METFORMIN HCL [Suspect]
     Route: 048
  3. SULFAMETHOXAZOLE + TRIMETHOPRIM [Suspect]
  4. GLIPIZIDE [Suspect]
     Dosage: 10 MG :1 TAB
     Route: 048
  5. ACTOS [Suspect]
  6. ALPRAZOLAM [Concomitant]
     Route: 048
  7. ASPIRIN [Concomitant]
     Route: 048
  8. CARVEDILOL [Concomitant]
     Route: 048
  9. CALCIUM [Concomitant]
     Route: 048
  10. VITAMIN D [Concomitant]
     Route: 048
  11. DOXYCYCLINE [Concomitant]
     Route: 048
  12. FOLIC ACID [Concomitant]
     Route: 048
  13. FUROSEMIDE [Concomitant]
     Route: 048
  14. GLIPIZIDE [Concomitant]
     Route: 048
  15. LEVITRA [Concomitant]
     Route: 048
  16. LIPITOR [Concomitant]
     Route: 048
  17. MAGNESIUM GLUCONATE [Concomitant]
     Route: 048
  18. PRADAXA [Concomitant]
     Route: 048
  19. CONVALLARIA MAJALIS\CRATAEGUS LAEVIGATA LEAF\PROXYPHYLLINE [Concomitant]
     Dosage: 1DF:1 CAPS
     Route: 048
  20. VITAMIN B12 [Concomitant]
     Route: 048
  21. VITAMIN D3 [Concomitant]
     Route: 048

REACTIONS (2)
  - Pancreatitis [Unknown]
  - Blood glucose decreased [Unknown]
